FAERS Safety Report 6068318-7 (Version None)
Quarter: 2009Q1

REPORT INFORMATION
  Report Type: 
  Country: None (occurrence: None)
  Receive Date: 20090206
  Receipt Date: 20090203
  Transmission Date: 20090719
  Serious: Yes (Death)
  Sender: FDA-Public Use
  Company Number: PHBS2009CH00681

PATIENT
  Age: 2 Year
  Sex: Male

DRUGS (4)
  1. CYCLOSPORINE [Suspect]
     Indication: STEM CELL TRANSPLANT
  2. CYCLOSPORINE [Suspect]
     Indication: PROPHYLAXIS AGAINST GRAFT VERSUS HOST DISEASE
  3. FLUDARABINE PHOSPHATE [Concomitant]
     Indication: STEM CELL TRANSPLANT
  4. ATGAM [Concomitant]
     Indication: STEM CELL TRANSPLANT

REACTIONS (1)
  - INFECTION [None]
